FAERS Safety Report 5031471-8 (Version None)
Quarter: 2006Q2

REPORT INFORMATION
  Report Type: 
  Country: None (occurrence: None)
  Receive Date: 20060616
  Receipt Date: 20060607
  Transmission Date: 20061013
  Serious: Yes (Hospitalization, Other)
  Sender: FDA-Public Use
  Company Number: 2006-06-0388

PATIENT
  Age: 40 Year
  Sex: Male

DRUGS (4)
  1. TEMODAR [Suspect]
     Indication: OLIGODENDROGLIOMA
     Dosage: 150 MG/M2 ORAL
     Route: 048
     Dates: end: 20060401
  2. STEROIDS (NOS) [Concomitant]
  3. CHEMOTHERAPY REGIMENS [Concomitant]
  4. RADIATION THERAPY [Concomitant]

REACTIONS (7)
  - DISEASE PROGRESSION [None]
  - ENCEPHALITIS [None]
  - HEMIPARESIS [None]
  - MENINGITIS [None]
  - MUSCULAR WEAKNESS [None]
  - PARAPARESIS [None]
  - PARAPLEGIA [None]
